FAERS Safety Report 8617956-3 (Version None)
Quarter: 2012Q3

REPORT INFORMATION
  Report Type: 
  Country: None (occurrence: None)
  Receive Date: 20120824
  Receipt Date: 20120312
  Transmission Date: 20120928
  Serious: No
  Sender: FDA-Public Use
  Company Number: US-ASTRAZENECA-2012SE17156

PATIENT
  Age: 54 Year
  Sex: Male
  Weight: 91.6 kg

DRUGS (5)
  1. BYSTOLIC [Concomitant]
     Indication: BLOOD PRESSURE ABNORMAL
  2. SYMBICORT [Suspect]
     Indication: ASTHMA
     Dosage: 80/4.5 MCG, 1 PUFF TWICE A DAY
     Route: 055
  3. LOZARTAN POTASSIUM [Concomitant]
     Indication: BLOOD CHOLESTEROL ABNORMAL
  4. HYDROCHLOROTHIAZIDE [Concomitant]
     Indication: BLOOD PRESSURE ABNORMAL
  5. PRAVASTATIN [Concomitant]
     Indication: BLOOD CHOLESTEROL ABNORMAL

REACTIONS (3)
  - OFF LABEL USE [None]
  - DRUG DOSE OMISSION [None]
  - DYSPNOEA [None]
